FAERS Safety Report 22822288 (Version 4)
Quarter: 2025Q2

REPORT INFORMATION
  Report Type: Report from Study
  Country: JP (occurrence: JP)
  Receive Date: 20230814
  Receipt Date: 20250414
  Transmission Date: 20250716
  Serious: Yes (Death, Other)
  Sender: ABBVIE
  Company Number: JP-TAKEDA-2023TJP010646AA

PATIENT
  Age: 78 Year
  Sex: Male
  Weight: 52 kg

DRUGS (1)
  1. LEUPROLIDE ACETATE [Suspect]
     Active Substance: LEUPROLIDE ACETATE
     Indication: Bulbospinal muscular atrophy congenital
     Dosage: 11.25 MILLIGRAM, EVERY 3 MONTHS
     Route: 058
     Dates: start: 20200513, end: 20231101

REACTIONS (1)
  - Gallbladder cancer [Fatal]

NARRATIVE: CASE EVENT DATE: 20230508
